FAERS Safety Report 6685873-4 (Version None)
Quarter: 2010Q2

REPORT INFORMATION
  Report Type: 
  Country: None (occurrence: None)
  Receive Date: 20100419
  Receipt Date: 20100408
  Transmission Date: 20101027
  Serious: Yes (Other)
  Sender: FDA-Public Use
  Company Number: CA-JNJFOC-20100402800

PATIENT
  Sex: Female
  Weight: 54.5 kg

DRUGS (3)
  1. REMICADE [Suspect]
     Indication: CROHN'S DISEASE
     Route: 042
  2. PREDNISONE [Concomitant]
  3. PROFERRIN [Concomitant]
     Route: 048

REACTIONS (4)
  - FIBROMYALGIA [None]
  - HAEMOGLOBIN DECREASED [None]
  - JAUNDICE [None]
  - PRURITUS [None]
